FAERS Safety Report 5755858-0 (Version None)
Quarter: 2008Q2

REPORT INFORMATION
  Report Type: 
  Country: None (occurrence: None)
  Receive Date: 20080528
  Receipt Date: 20080513
  Transmission Date: 20081010
  Serious: Yes (Hospitalization)
  Sender: FDA-Public Use
  Company Number: 2008S1008345

PATIENT
  Age: 61 Year
  Sex: Female
  Weight: 90.7194 kg

DRUGS (11)
  1. BYSTOLIC [Suspect]
     Indication: HYPERTENSION
     Dosage: 5 MG DAILY ORAL; 5 MG TWICE A DAY ORAL; 10 MG TWICE A DAY ORAL
     Route: 048
     Dates: start: 20080214, end: 20080401
  2. BYSTOLIC [Suspect]
     Indication: HYPERTENSION
     Dosage: 5 MG DAILY ORAL; 5 MG TWICE A DAY ORAL; 10 MG TWICE A DAY ORAL
     Route: 048
     Dates: start: 20080401, end: 20080512
  3. BYSTOLIC [Suspect]
     Indication: HYPERTENSION
     Dosage: 5 MG DAILY ORAL; 5 MG TWICE A DAY ORAL; 10 MG TWICE A DAY ORAL
     Route: 048
     Dates: start: 20080512, end: 20080513
  4. VALIUM [Concomitant]
  5. PREVACID [Concomitant]
  6. LOMOTIL [Concomitant]
  7. BENTYL [Concomitant]
  8. AVAPRO [Concomitant]
  9. ZYRTEC [Concomitant]
  10. LANTUS [Concomitant]
  11. HUMALOG [Concomitant]

REACTIONS (15)
  - APHASIA [None]
  - ASTHENIA [None]
  - BLOOD GLUCOSE INCREASED [None]
  - BLOOD PRESSURE FLUCTUATION [None]
  - BLOOD PRESSURE INCREASED [None]
  - CARDIAC MURMUR [None]
  - CEREBROVASCULAR ACCIDENT [None]
  - DIARRHOEA [None]
  - DRUG HYPERSENSITIVITY [None]
  - MIGRAINE [None]
  - NAUSEA [None]
  - OEDEMA PERIPHERAL [None]
  - RASH [None]
  - SPEECH DISORDER [None]
  - VOMITING [None]
